FAERS Safety Report 13393486 (Version 4)
Quarter: 2017Q3

REPORT INFORMATION
  Report Type: Spontaneous
  Country: JP (occurrence: JP)
  Receive Date: 20170331
  Receipt Date: 20170706
  Transmission Date: 20171127
  Serious: Yes (Other)
  Sender: FDA-Public Use
  Company Number: JP-BAUSCH-BL-2017-007998

PATIENT
  Age: 93 Year
  Sex: Female

DRUGS (3)
  1. CLENAFIN TOPICAL SOLUTION 10% FOR NAIL [Suspect]
     Active Substance: EFINACONAZOLE
     Indication: DERMATOPHYTOSIS OF NAIL
     Route: 061
     Dates: start: 20161007, end: 20161029
  2. ADESTAN [Suspect]
     Active Substance: ISOCONAZOLE NITRATE
     Indication: TINEA PEDIS
     Route: 061
     Dates: start: 20161007, end: 20161029
  3. CLENAFIN TOPICAL SOLUTION 10% FOR NAIL [Suspect]
     Active Substance: EFINACONAZOLE
     Route: 061
     Dates: start: 20161114, end: 20161219

REACTIONS (1)
  - Dermatitis contact [Recovered/Resolved]

NARRATIVE: CASE EVENT DATE: 20161029
